FAERS Safety Report 23227564 (Version 1)
Quarter: 2023Q4

REPORT INFORMATION
  Report Type: Report from Study
  Country: US (occurrence: US)
  Receive Date: 20231124
  Receipt Date: 20231124
  Transmission Date: 20240109
  Serious: No
  Sender: FDA-Public Use
  Company Number: US-AstraZeneca-CH-00515198A

PATIENT
  Sex: Male

DRUGS (2)
  1. ULTOMIRIS [Suspect]
     Active Substance: RAVULIZUMAB-CWVZ
     Indication: Myasthenia gravis
     Dosage: UNK
     Route: 065
  2. Immunoglobulin [Concomitant]
     Indication: Product used for unknown indication
     Dosage: UNK, Q2W
     Route: 065

REACTIONS (8)
  - Abdominal discomfort [Unknown]
  - Diplopia [Unknown]
  - Dyspnoea [Unknown]
  - Vision blurred [Unknown]
  - Hernia [Unknown]
  - Dizziness [Unknown]
  - Muscle spasms [Unknown]
  - Nausea [Unknown]
